FAERS Safety Report 8899122 (Version 3)
Quarter: 2013Q2

REPORT INFORMATION
  Report Type: Spontaneous
  Country: US (occurrence: US)
  Receive Date: 20121109
  Receipt Date: 20130515
  Transmission Date: 20140414
  Serious: Yes (Life-Threatening, Hospitalization, Other)
  Sender: FDA-Public Use
  Company Number: CHPA2012US023180

PATIENT
  Age: 43 Year
  Sex: Female

DRUGS (3)
  1. NODOZ [Suspect]
     Dosage: 1 DF, PRN
     Route: 048
     Dates: start: 2002
  2. NODOZ [Suspect]
     Dosage: 2 DF, QD
     Dates: start: 20120105, end: 20120105
  3. ADVAIR [Concomitant]
     Indication: ASTHMA
     Dosage: 500/50, 2 PUFFS A DAY
     Dates: start: 1998

REACTIONS (15)
  - Respiratory distress [Recovered/Resolved]
  - Respiratory failure [Recovered/Resolved]
  - Coma [Recovered/Resolved]
  - Myocardial infarction [Recovered/Resolved]
  - Atrioventricular block [Recovered/Resolved]
  - Coronary artery disease [Unknown]
  - Chronic obstructive pulmonary disease [Unknown]
  - Asthma [Unknown]
  - Cardiac disorder [Recovered/Resolved]
  - Malaise [Recovered/Resolved]
  - Dyspnoea [Recovered/Resolved]
  - Depression [Unknown]
  - Feeling abnormal [Recovered/Resolved]
  - Fatigue [Recovered/Resolved]
  - Incorrect dose administered [Unknown]
